FAERS Safety Report 4318270-7 (Version None)
Quarter: 2004Q1

REPORT INFORMATION
  Report Type: 
  Country: None (occurrence: None)
  Receive Date: 20040315
  Receipt Date: 20040128
  Transmission Date: 20041129
  Serious: No
  Sender: FDA-Public Use
  Company Number: 2004196709US

PATIENT

DRUGS (1)
  1. BEXTRA [Suspect]
     Indication: ARTHRITIS
     Dosage: 10 MG, QD

REACTIONS (2)
  - STRESS SYMPTOMS [None]
  - URINE ODOUR ABNORMAL [None]
